FAERS Safety Report 5618670-9 (Version None)
Quarter: 2008Q1

REPORT INFORMATION
  Report Type: 
  Country: None (occurrence: None)
  Receive Date: 20080205
  Receipt Date: 20080205
  Transmission Date: 20080703
  Serious: Yes (Disabling, Other)
  Sender: FDA-Public Use
  Company Number: None

PATIENT
  Sex: Female
  Weight: 86.1834 kg

DRUGS (1)
  1. METOPROLOL SUCCINATE [Suspect]
     Indication: HYPERTENSION
     Dosage: 25 MG 1 TAB DAILY PO
     Route: 048
     Dates: start: 20080101, end: 20080203

REACTIONS (7)
  - ARRHYTHMIA [None]
  - BLOOD PRESSURE INCREASED [None]
  - DIZZINESS [None]
  - DRUG INEFFECTIVE [None]
  - INSOMNIA [None]
  - NAUSEA [None]
  - PHARMACEUTICAL PRODUCT COMPLAINT [None]
